FAERS Safety Report 8915918 (Version 2)
Quarter: 2012Q4

REPORT INFORMATION
  Report Type: 
  Country: US (occurrence: US)
  Receive Date: 20121119
  Receipt Date: 20121221
  Transmission Date: 20130627
  Serious: Yes (Other)
  Sender: FDA-Public Use
  Company Number: US-PFIZER INC-2012288368

PATIENT
  Age: 51 Year
  Sex: Female
  Weight: 95 kg

DRUGS (4)
  1. LYRICA [Suspect]
     Indication: FIBROMYALGIA
     Dosage: 150 mg, 3x/day
     Dates: end: 201210
  2. OXYCODONE [Concomitant]
     Indication: DEGENERATIVE DISC DISEASE
     Dosage: UNK,4x/day
  3. FENTANYL [Concomitant]
     Indication: DEGENERATIVE DISC DISEASE
     Dosage: UNK (one patch in every 72 hours)
  4. FENTANYL [Concomitant]
     Indication: OSTEOARTHRITIS

REACTIONS (2)
  - Swelling [Recovering/Resolving]
  - Oedema [Unknown]
